FAERS Safety Report 9844052 (Version 1)
Quarter: 2014Q1

REPORT INFORMATION
  Report Type: Spontaneous
  Country: CA (occurrence: CA)
  Receive Date: 20140127
  Receipt Date: 20140127
  Transmission Date: 20141002
  Serious: Yes (Other)
  Sender: FDA-Public Use
  Company Number: CA-ROCHE-1338465

PATIENT
  Age: 50 Year
  Sex: Female

DRUGS (2)
  1. HERCEPTIN [Suspect]
     Indication: GASTROINTESTINAL CARCINOMA
     Route: 042
     Dates: start: 201307, end: 201312
  2. ZOPLICONE (UNK INGREDIENTS) [Concomitant]

REACTIONS (2)
  - Metastases to lymph nodes [Not Recovered/Not Resolved]
  - Tooth infection [Not Recovered/Not Resolved]
